FAERS Safety Report 4880103-8 (Version None)
Quarter: 2006Q1

REPORT INFORMATION
  Report Type: 
  Country: None (occurrence: None)
  Receive Date: 20060111
  Receipt Date: 20051230
  Transmission Date: 20060701
  Serious: Yes (Hospitalization, Other)
  Sender: FDA-Public Use
  Company Number: KII-2005-0020568

PATIENT
  Age: 34 Year
  Sex: Female

DRUGS (9)
  1. HYDROMORPHONE HCL [Suspect]
     Indication: PAIN
     Dosage: ORAL
     Route: 048
  2. PROPOXYPHENE HCL AND ACETAMINOPHEN [Suspect]
     Dosage: ORAL
     Route: 048
  3. CYCLOBENZAPRINE (CYCLOBENZAPRINE) [Suspect]
     Dosage: ORAL
     Route: 048
  4. PROMETHAZINE [Suspect]
     Dosage: ORAL
     Route: 048
  5. TRAMADOL HCL [Suspect]
     Dosage: ORAL
     Route: 048
  6. BENZODIAZEPINE DERIVATIVES ( ) [Suspect]
     Dosage: ORAL
     Route: 048
  7. AMITRIPTYLINE HCL [Suspect]
     Dosage: ORAL
     Route: 048
  8. SSRI ( ) [Suspect]
     Dosage: ORAL
     Route: 048
  9. EX-LAX (YELLOW PHENOLPHTHALEIN) [Suspect]
     Dosage: ORAL
     Route: 048

REACTIONS (18)
  - AGITATION [None]
  - AREFLEXIA [None]
  - BLOOD MAGNESIUM DECREASED [None]
  - BLOOD PRESSURE DECREASED [None]
  - BODY TEMPERATURE DECREASED [None]
  - COMA [None]
  - CONFUSIONAL STATE [None]
  - CORNEAL REFLEX DECREASED [None]
  - ELECTROCARDIOGRAM QT CORRECTED INTERVAL PROLONGED [None]
  - INTERNATIONAL NORMALISED RATIO DECREASED [None]
  - MULTIPLE DRUG OVERDOSE INTENTIONAL [None]
  - PROTHROMBIN TIME PROLONGED [None]
  - RASH ERYTHEMATOUS [None]
  - RESPIRATORY RATE DECREASED [None]
  - ROAD TRAFFIC ACCIDENT [None]
  - SINUS TACHYCARDIA [None]
  - SOMNOLENCE [None]
  - SUICIDE ATTEMPT [None]
